FAERS Safety Report 8397207-8 (Version None)
Quarter: 2012Q2

REPORT INFORMATION
  Report Type: 
  Country: None (occurrence: None)
  Receive Date: 20120530
  Receipt Date: 20120523
  Transmission Date: 20120825
  Serious: Yes (Hospitalization)
  Sender: FDA-Public Use
  Company Number: US-MERCK-1202USA00049

PATIENT
  Age: 58 Year
  Sex: Female
  Weight: 68 kg

DRUGS (2)
  1. FOSAMAX PLUS D [Suspect]
     Indication: OSTEOPENIA
     Route: 048
     Dates: start: 20050101, end: 20100101
  2. FOSAMAX [Suspect]
     Route: 048

REACTIONS (21)
  - JOINT CONTRACTURE [None]
  - SPINAL OSTEOARTHRITIS [None]
  - TOOTH DISORDER [None]
  - BONE DISORDER [None]
  - TRIGGER FINGER [None]
  - PSORIASIS [None]
  - APPENDIX DISORDER [None]
  - FEMORAL NECK FRACTURE [None]
  - GASTROINTESTINAL DISORDER [None]
  - ANAEMIA [None]
  - HYPERTENSION [None]
  - INFECTION [None]
  - FALL [None]
  - BLOOD CHOLESTEROL INCREASED [None]
  - HIP FRACTURE [None]
  - CONTUSION [None]
  - TONSILLAR DISORDER [None]
  - THYROID DISORDER [None]
  - KYPHOSIS [None]
  - DEPRESSION [None]
  - TENOSYNOVITIS STENOSANS [None]
